FAERS Safety Report 8128513-X (Version None)
Quarter: 2012Q1

REPORT INFORMATION
  Report Type: 
  Country: None (occurrence: None)
  Receive Date: 20120210
  Receipt Date: 20120126
  Transmission Date: 20120608
  Serious: Yes (Hospitalization, Other)
  Sender: FDA-Public Use
  Company Number: AU-ROCHE-1018178

PATIENT
  Sex: Male
  Weight: 91 kg

DRUGS (3)
  1. VEMURAFENIB [Suspect]
     Indication: MALIGNANT MELANOMA
     Dosage: TEMPORARILY CEASED
     Route: 048
     Dates: start: 20111107
  2. VEMURAFENIB [Suspect]
     Dates: start: 20111219
  3. VEMURAFENIB [Suspect]
     Dates: start: 20120119

REACTIONS (4)
  - LIVER FUNCTION TEST ABNORMAL [None]
  - METASTASES TO PERITONEUM [None]
  - DRUG ERUPTION [None]
  - PYREXIA [None]
